FAERS Safety Report 6769089-9 (Version None)
Quarter: 2010Q2

REPORT INFORMATION
  Report Type: 
  Country: None (occurrence: None)
  Receive Date: 20100604
  Receipt Date: 20100528
  Transmission Date: 20101027
  Serious: Yes (Other)
  Sender: FDA-Public Use
  Company Number: 2010SP029899

PATIENT
  Sex: Male
  Weight: 2.06 kg

DRUGS (2)
  1. NASONEX [Suspect]
     Indication: DRUG EXPOSURE DURING PREGNANCY
     Dosage: TRPL
     Route: 064
     Dates: start: 20080101
  2. PRORHINEL         (PRORHINEL  02047601/) [Suspect]
     Indication: DRUG EXPOSURE DURING PREGNANCY
     Dosage: V
     Route: 064
     Dates: start: 20080101, end: 20090101

REACTIONS (3)
  - CAESAREAN SECTION [None]
  - FOETAL GROWTH RETARDATION [None]
  - MATERNAL DRUGS AFFECTING FOETUS [None]
